FAERS Safety Report 8114878-1 (Version None)
Quarter: 2012Q1

REPORT INFORMATION
  Report Type: 
  Country: None (occurrence: None)
  Receive Date: 20120201
  Receipt Date: 20120125
  Transmission Date: 20120608
  Serious: Yes (Hospitalization)
  Sender: FDA-Public Use
  Company Number: TPA2011A07836

PATIENT
  Age: 79 Year
  Sex: Male
  Weight: 78.9259 kg

DRUGS (7)
  1. FEXOFENADINE HCL (FEXOFENADINE HYDROCHLORIDE) [Concomitant]
  2. ACTOS [Suspect]
     Indication: TYPE 2 DIABETES MELLITUS
     Dosage: 30 MG, 1 IN 1 D, PER ORAL
     Route: 048
     Dates: end: 20081105
  3. ATENOLOL [Concomitant]
  4. MELOXICAM [Concomitant]
  5. ALLOPURINOL [Concomitant]
  6. TRAVATAN [Concomitant]
  7. LEVOTHYROXINE SODIUM [Concomitant]

REACTIONS (17)
  - PROSTATE CANCER [None]
  - METASTASES TO SKIN [None]
  - HAEMATEMESIS [None]
  - ANAEMIA [None]
  - MALAISE [None]
  - NECK PAIN [None]
  - ARTHRALGIA [None]
  - METASTASES TO LUNG [None]
  - DIARRHOEA [None]
  - FAECES DISCOLOURED [None]
  - GASTROINTESTINAL HAEMORRHAGE [None]
  - BLADDER CANCER [None]
  - FATIGUE [None]
  - HYPERHIDROSIS [None]
  - BACK PAIN [None]
  - ASTHENIA [None]
  - MYALGIA [None]
